FAERS Safety Report 18972293 (Version 1)
Quarter: 2021Q1

REPORT INFORMATION
  Report Type: Spontaneous
  Country: DE (occurrence: PT)
  Receive Date: 20210305
  Receipt Date: 20210305
  Transmission Date: 20210420
  Serious: Yes (Hospitalization)
  Sender: FDA-Public Use
  Company Number: DE-AUROBINDO-AUR-APL-2019-050811

PATIENT
  Age: 59 Year
  Sex: Female

DRUGS (3)
  1. ZEVALIN [Suspect]
     Active Substance: IBRITUMOMAB TIUXETAN
     Indication: NON-HODGKIN^S LYMPHOMA STAGE I
     Dosage: UNK
     Route: 042
     Dates: start: 20050805, end: 20050805
  2. YTRACIS [Suspect]
     Active Substance: YTTRIUM CHLORIDE Y-90
     Indication: NON-HODGKIN^S LYMPHOMA STAGE I
     Dosage: UNK
     Route: 065
     Dates: start: 20050805, end: 20050805
  3. RITUXIMAB. [Suspect]
     Active Substance: RITUXIMAB
     Indication: NON-HODGKIN^S LYMPHOMA STAGE I
     Dosage: UNK
     Route: 042
     Dates: start: 20050805, end: 20050805

REACTIONS (2)
  - Hepatic function abnormal [Unknown]
  - Skin reaction [Unknown]

NARRATIVE: CASE EVENT DATE: 20050822
